FAERS Safety Report 23380649 (Version 4)
Quarter: 2024Q2

REPORT INFORMATION
  Report Type: Report from Study
  Country: US (occurrence: US)
  Receive Date: 20240109
  Receipt Date: 20240617
  Transmission Date: 20240716
  Serious: No
  Sender: FDA-Public Use
  Company Number: US-AstraZeneca-CH-00539578A

PATIENT
  Age: 76 Year
  Sex: Female

DRUGS (1)
  1. ULTOMIRIS [Suspect]
     Active Substance: RAVULIZUMAB-CWVZ
     Indication: Myasthenia gravis
     Dosage: UNK
     Route: 041
     Dates: start: 20230102

REACTIONS (8)
  - Nerve compression [Unknown]
  - Peroneal nerve palsy [Recovered/Resolved]
  - Eyelid ptosis [Not Recovered/Not Resolved]
  - Diarrhoea [Recovering/Resolving]
  - Stenosis [Unknown]
  - Anaemia [Recovering/Resolving]
  - Weight increased [Recovering/Resolving]
  - Intervertebral disc protrusion [Unknown]

NARRATIVE: CASE EVENT DATE: 20231201
